FAERS Safety Report 19817063 (Version 10)
Quarter: 2022Q2

REPORT INFORMATION
  Report Type: Spontaneous
  Country: US (occurrence: US)
  Receive Date: 20210910
  Receipt Date: 20220602
  Transmission Date: 20220721
  Serious: Yes (Other)
  Sender: FDA-Public Use
  Company Number: US-PFIZER INC-2021399239

PATIENT
  Age: 90 Year
  Sex: Female

DRUGS (4)
  1. XALATAN [Suspect]
     Active Substance: LATANOPROST
     Indication: Glaucoma
     Dosage: 1 DROP, TO BOTH EYES (2.5 ML WAS REPORTED)
     Route: 047
  2. XALATAN [Suspect]
     Active Substance: LATANOPROST
     Dosage: UNK, ALTERNATE DAY (EVERY OTHER DAY)
  3. NORVASC [Concomitant]
     Active Substance: AMLODIPINE BESYLATE
     Indication: Blood pressure abnormal
     Dosage: UNK
  4. LIPITOR [Concomitant]
     Active Substance: ATORVASTATIN CALCIUM
     Dosage: UNK

REACTIONS (23)
  - Fall [Unknown]
  - Concussion [Unknown]
  - Ejection fraction decreased [Unknown]
  - Allergic reaction to excipient [Unknown]
  - Eye disorder [Unknown]
  - Memory impairment [Unknown]
  - Hypoacusis [Unknown]
  - Weight decreased [Unknown]
  - Diarrhoea [Recovered/Resolved]
  - Neck injury [Unknown]
  - Skeletal injury [Unknown]
  - Spinal column injury [Unknown]
  - Cardiac disorder [Unknown]
  - Therapeutic response unexpected [Unknown]
  - Eye irritation [Unknown]
  - Arthropathy [Unknown]
  - Weight increased [Unknown]
  - Stress [Unknown]
  - Asthenia [Unknown]
  - Visual impairment [Unknown]
  - Product dose omission issue [Unknown]
  - Expired product administered [Unknown]
  - Intentional product misuse [Unknown]

NARRATIVE: CASE EVENT DATE: 20210407
